FAERS Safety Report 18847705 (Version 1)
Quarter: 2021Q1

REPORT INFORMATION
  Report Type: Spontaneous
  Country: CN (occurrence: CN)
  Receive Date: 20210204
  Receipt Date: 20210204
  Transmission Date: 20210419
  Serious: Yes (Other)
  Sender: FDA-Public Use
  Company Number: CN-BAYER-2021-050637

PATIENT
  Age: 49 Year
  Sex: Male
  Weight: 63 kg

DRUGS (1)
  1. AVELOX [Suspect]
     Active Substance: MOXIFLOXACIN HYDROCHLORIDE
     Indication: CELLULITIS
     Dosage: 0.4 G, QD
     Route: 048
     Dates: start: 20200807, end: 20200809

REACTIONS (7)
  - Wolff-Parkinson-White syndrome [Recovered/Resolved]
  - Skin warm [Recovered/Resolved]
  - Head discomfort [Recovered/Resolved]
  - Ocular discomfort [Recovered/Resolved]
  - Hyperhidrosis [Recovered/Resolved]
  - Chest discomfort [Recovered/Resolved]
  - Dyspnoea [Recovered/Resolved]

NARRATIVE: CASE EVENT DATE: 20200810
